FAERS Safety Report 5412242-7 (Version None)
Quarter: 2007Q3

REPORT INFORMATION
  Report Type: 
  Country: None (occurrence: None)
  Receive Date: 20070810
  Receipt Date: 20070810
  Transmission Date: 20080115
  Serious: Yes (Hospitalization)
  Sender: FDA-Public Use
  Company Number: None

PATIENT
  Age: 86 Year
  Sex: Male

DRUGS (9)
  1. DIVALPROEX SODIUM [Suspect]
     Indication: BIPOLAR I DISORDER
     Dosage: 2000MG HS PO
     Route: 048
     Dates: start: 19960207
  2. ZOLOFT [Concomitant]
  3. PLAVIX [Concomitant]
  4. GABAPENTIN [Concomitant]
  5. MIRTAZAPINE [Concomitant]
  6. ISOSORBIDE ER [Concomitant]
  7. MAGNESIUM OXIDE [Concomitant]
  8. KLONOPIN [Concomitant]
  9. COLACE [Concomitant]

REACTIONS (5)
  - AGITATION [None]
  - DELIRIUM [None]
  - DISORIENTATION [None]
  - FALL [None]
  - HYPERAMMONAEMIA [None]
